FAERS Safety Report 15369534 (Version 6)
Quarter: 2024Q1

REPORT INFORMATION
  Report Type: Spontaneous
  Country: US (occurrence: US)
  Receive Date: 20180911
  Receipt Date: 20240311
  Transmission Date: 20240410
  Serious: No
  Sender: FDA-Public Use
  Company Number: US-PFIZER INC-2018363007

PATIENT
  Age: 54 Year
  Sex: Male
  Weight: 94.798 kg

DRUGS (3)
  1. SOMAVERT [Suspect]
     Active Substance: PEGVISOMANT
     Indication: Pituitary tumour
     Dosage: 10 MG, DAILY
     Dates: start: 20170929
  2. SOMAVERT [Suspect]
     Active Substance: PEGVISOMANT
     Dosage: 15 MG, DAILY
  3. GLIPIZIDE [Concomitant]
     Active Substance: GLIPIZIDE
     Indication: Diabetes mellitus
     Dosage: 2.5 MG, 1X/DAY
     Dates: start: 2019

REACTIONS (2)
  - Insulin-like growth factor increased [Unknown]
  - Off label use [Unknown]

NARRATIVE: CASE EVENT DATE: 20170929
